FAERS Safety Report 9615770 (Version 2)
Quarter: 2013Q4

REPORT INFORMATION
  Report Type: Spontaneous
  Country: US (occurrence: US)
  Receive Date: 20131011
  Receipt Date: 20131011
  Transmission Date: 20140711
  Serious: Yes (Other)
  Sender: FDA-Public Use
  Company Number: US-NAPPMUNDI-USA-2013-0098945

PATIENT
  Age: 86 Year
  Sex: Female
  Weight: 70.3 kg

DRUGS (1)
  1. BUTRANS [Suspect]
     Indication: PAIN
     Dosage: 10 MCG/HR, WEEKLY
     Route: 062
     Dates: start: 20121213, end: 20130108

REACTIONS (2)
  - Dermatitis contact [Recovered/Resolved]
  - Rash generalised [Unknown]
